FAERS Safety Report 23464932 (Version 2)
Quarter: 2024Q1

REPORT INFORMATION
  Report Type: Spontaneous
  Country: SI (occurrence: SI)
  Receive Date: 20240201
  Receipt Date: 20240208
  Transmission Date: 20240410
  Serious: No
  Sender: FDA-Public Use
  Company Number: SI-ORGANON-O2401SVN002725

PATIENT
  Age: 2 Year

DRUGS (1)
  1. BETAMETHASONE DIPROPIONATE\CLOTRIMAZOLE [Suspect]
     Active Substance: BETAMETHASONE DIPROPIONATE\CLOTRIMAZOLE
     Dosage: 15 GRAM
     Route: 048

REACTIONS (2)
  - Incorrect route of product administration [Unknown]
  - Accidental exposure to product [Unknown]
